FAERS Safety Report 15422670 (Version 1)
Quarter: 2018Q3

REPORT INFORMATION
  Report Type: Spontaneous
  Country: DE (occurrence: DE)
  Receive Date: 20180925
  Receipt Date: 20180925
  Transmission Date: 20181010
  Serious: Yes (Hospitalization, Other)
  Sender: FDA-Public Use
  Company Number: DE-SUN PHARMACEUTICAL INDUSTRIES LTD-2018RR-185264

PATIENT
  Age: 49 Year
  Sex: Female

DRUGS (9)
  1. TOCILIZUMAB. [Suspect]
     Active Substance: TOCILIZUMAB
     Dosage: 162 MG, 1/WEEK
     Route: 058
     Dates: start: 201602
  2. DICLOFENAC [Concomitant]
     Active Substance: DICLOFENAC
     Indication: PRODUCT USED FOR UNKNOWN INDICATION
     Dosage: 75 MG
     Route: 065
  3. SALBUTAMOL [Concomitant]
     Active Substance: ALBUTEROL
     Indication: PRODUCT USED FOR UNKNOWN INDICATION
     Dosage: ()
     Route: 065
  4. TOCILIZUMAB. [Suspect]
     Active Substance: TOCILIZUMAB
     Dosage: 162 MG, 1/WEEK
     Route: 058
     Dates: start: 20180823
  5. ESTREVA [Concomitant]
     Active Substance: ESTRADIOL
     Indication: PRODUCT USED FOR UNKNOWN INDICATION
     Dosage: ()
     Route: 065
  6. ATMADISC [Concomitant]
     Active Substance: FLUTICASONE PROPIONATE\SALMETEROL XINAFOATE
     Indication: PRODUCT USED FOR UNKNOWN INDICATION
     Dosage: ()
     Route: 065
  7. VERAMEX [Concomitant]
     Active Substance: VERAPAMIL HYDROCHLORIDE
     Indication: PRODUCT USED FOR UNKNOWN INDICATION
     Dosage: 40 MG, UNK
     Route: 065
  8. OMEPRAZOLE. [Suspect]
     Active Substance: OMEPRAZOLE
     Indication: DYSPEPSIA
     Dosage: 20 MG
     Route: 065
  9. TOCILIZUMAB. [Suspect]
     Active Substance: TOCILIZUMAB
     Indication: RHEUMATOID ARTHRITIS
     Dosage: 162 MG, 1/WEEK
     Route: 058
     Dates: start: 20150302, end: 201512

REACTIONS (13)
  - Influenza like illness [Recovered/Resolved]
  - Urinary tract infection [Unknown]
  - Chest pain [Recovered/Resolved]
  - Arthralgia [Not Recovered/Not Resolved]
  - Rheumatoid arthritis [Not Recovered/Not Resolved]
  - Tooth fracture [Recovered/Resolved]
  - Dislocation of vertebra [Not Recovered/Not Resolved]
  - Nail infection [Recovered/Resolved]
  - Pyelitis [Unknown]
  - Arthralgia [Not Recovered/Not Resolved]
  - Dyspnoea [Recovered/Resolved]
  - Seasonal allergy [Unknown]
  - Osteoarthritis [Unknown]

NARRATIVE: CASE EVENT DATE: 20150420
